FAERS Safety Report 5488072-7 (Version None)
Quarter: 2007Q4

REPORT INFORMATION
  Report Type: 
  Country: None (occurrence: None)
  Receive Date: 20071017
  Receipt Date: 20071009
  Transmission Date: 20080405
  Serious: Yes (Hospitalization)
  Sender: FDA-Public Use
  Company Number: PHBS2006GB12491

PATIENT
  Age: 78 Year
  Sex: Male

DRUGS (8)
  1. COMTESS [Suspect]
     Indication: PARKINSON'S DISEASE
     Dosage: 1 DF, QID
     Route: 048
     Dates: start: 20060601
  2. COMTESS [Suspect]
     Dosage: 2 DF, QID
     Route: 048
     Dates: start: 20060801
  3. SINEMET CR [Concomitant]
     Indication: PARKINSON'S DISEASE
     Dosage: 1 DF, QD
     Route: 048
  4. SINEMET [Concomitant]
     Indication: PARKINSON'S DISEASE
     Dosage: 2 DF, BID
     Route: 048
  5. CITALOPRAM HYDROBROMIDE [Concomitant]
     Dosage: 8 DRP, QD
     Route: 048
  6. QUETIAPINE FUMARATE [Concomitant]
     Dosage: 20 MG, QD
     Route: 048
  7. GLICLAZIDE [Concomitant]
     Dosage: 40 MG, QD
     Route: 048
  8. PARACETAMOL [Concomitant]
     Route: 048

REACTIONS (1)
  - FAECES DISCOLOURED [None]
